FAERS Safety Report 9708996 (Version 6)
Quarter: 2015Q2

REPORT INFORMATION
  Report Type: Spontaneous
  Country: US (occurrence: US)
  Receive Date: 20131125
  Receipt Date: 20150409
  Transmission Date: 20150821
  Serious: Yes (Death, Hospitalization, Other)
  Sender: FDA-Public Use
  Company Number: US-009507513-1311USA009887

PATIENT
  Sex: Female
  Weight: 104.31 kg

DRUGS (4)
  1. VITAMIN B COMPLEX [Concomitant]
     Active Substance: CYANOCOBALAMIN\DEXPANTHENOL\NIACINAMIDE\PYRIDOXINE HYDROCHLORIDE\RIBOFLAVIN 5^-PHOSPHATE SODIUM\THIAMINE HYDROCHLORIDE\VITAMIN B COMPLEX
     Indication: ARTHRITIS
     Dosage: UNK
     Dates: start: 2008, end: 201210
  2. CENTRUM ULTRA WOMENS [Concomitant]
     Indication: ARTHRITIS
     Dosage: UNK
     Dates: start: 2008, end: 201210
  3. SCHIFF MOVE FREE [Concomitant]
     Active Substance: CHONDROITIN SULFATE A\GLUCOSAMINE
     Indication: ARTHRITIS
     Dosage: UNK
     Dates: start: 2008, end: 201210
  4. JANUVIA [Suspect]
     Active Substance: SITAGLIPTIN PHOSPHATE
     Indication: TYPE 2 DIABETES MELLITUS
     Dosage: 100 MG, QD
     Route: 048
     Dates: start: 20090916, end: 20130203

REACTIONS (43)
  - Electrolyte imbalance [Unknown]
  - Ovarian epithelial cancer [Unknown]
  - Anaemia of chronic disease [Recovering/Resolving]
  - Hyponatraemia [Recovering/Resolving]
  - Thrombocytosis [Unknown]
  - Fall [Unknown]
  - Pelvic mass [Unknown]
  - Colon adenoma [Unknown]
  - Sepsis [Unknown]
  - Abdominal discomfort [Unknown]
  - Endometriosis [Unknown]
  - Oedema peripheral [Not Recovered/Not Resolved]
  - Large intestinal ulcer [Unknown]
  - Acute prerenal failure [Recovered/Resolved]
  - Dehydration [Unknown]
  - Pneumonia [Unknown]
  - Asthenia [Recovering/Resolving]
  - Intestinal mass [Unknown]
  - Hepatic lesion [Unknown]
  - Atelectasis [Unknown]
  - Staphylococcal bacteraemia [Unknown]
  - Acute kidney injury [Unknown]
  - Hyperkalaemia [Recovering/Resolving]
  - Oropharyngeal candidiasis [Unknown]
  - Cellulitis [Unknown]
  - Hypertension [Unknown]
  - Pancreatic carcinoma metastatic [Fatal]
  - Neuropathy peripheral [Not Recovered/Not Resolved]
  - Nodal arrhythmia [Unknown]
  - Toxicity to various agents [Unknown]
  - Atrial fibrillation [Unknown]
  - Packed red blood cell transfusion [Unknown]
  - Peritonitis bacterial [Unknown]
  - Dyslipidaemia [Unknown]
  - Ascites [Not Recovered/Not Resolved]
  - Pulmonary fibrosis [Unknown]
  - Rectal polypectomy [Unknown]
  - Urinary retention [Unknown]
  - Acute respiratory failure [Unknown]
  - Lactic acidosis [Unknown]
  - Micturition disorder [Unknown]
  - Anuria [Not Recovered/Not Resolved]
  - Carpal tunnel decompression [Unknown]

NARRATIVE: CASE EVENT DATE: 2012
